FAERS Safety Report 6335063-X (Version None)
Quarter: 2009Q3

REPORT INFORMATION
  Report Type: 
  Country: None (occurrence: None)
  Receive Date: 20090831
  Receipt Date: 20090824
  Transmission Date: 20100115
  Serious: Yes (Hospitalization)
  Sender: FDA-Public Use
  Company Number: A0803787A

PATIENT
  Age: 65 Year
  Sex: Male

DRUGS (13)
  1. CARVEDILOL [Suspect]
     Dosage: 12.5MG TWICE PER DAY
     Route: 048
     Dates: start: 20090301
  2. METFORMIN HCL [Concomitant]
  3. GLIPIZIDE [Concomitant]
  4. LISINOPRIL [Concomitant]
  5. FUROSEMIDE [Concomitant]
  6. XANAX [Concomitant]
  7. ZOCOR [Concomitant]
  8. VITAMIN B SUPPLEMENT [Concomitant]
  9. FOLIC ACID [Concomitant]
  10. ASCORBIC ACID [Concomitant]
  11. PROBIOTICS [Concomitant]
  12. MULTI-VITAMIN [Concomitant]
  13. GLUCOSAMINE + CHONDROITIN [Concomitant]

REACTIONS (2)
  - DIZZINESS [None]
  - DYSPNOEA [None]
